FAERS Safety Report 5768980-X (Version None)
Quarter: 2008Q2

REPORT INFORMATION
  Report Type: 
  Country: None (occurrence: None)
  Receive Date: 20080612
  Receipt Date: 20080317
  Transmission Date: 20081010
  Serious: No
  Sender: FDA-Public Use
  Company Number: US-ABBOTT-08P-163-0442984-00

PATIENT
  Sex: Female
  Weight: 108.96 kg

DRUGS (18)
  1. HUMIRA [Suspect]
     Indication: RHEUMATOID ARTHRITIS
     Route: 058
     Dates: start: 20071201
  2. HYDROCHLOROTHIAZIDE [Concomitant]
     Indication: DRUG USE FOR UNKNOWN INDICATION
     Route: 048
  3. FOLIC ACID [Concomitant]
     Indication: DRUG USE FOR UNKNOWN INDICATION
     Route: 048
  4. CYCLOBENZAPRINE HCL [Concomitant]
     Indication: DRUG USE FOR UNKNOWN INDICATION
     Route: 048
  5. LEVOTHYROXINE SODIUM [Concomitant]
     Indication: HYPOTHYROIDISM
     Route: 048
  6. LISINOPRIL [Concomitant]
     Indication: HYPERTENSION
     Route: 048
  7. RANITIDINE [Concomitant]
     Indication: DRUG USE FOR UNKNOWN INDICATION
     Route: 048
  8. HYDROCODONE [Concomitant]
     Indication: DRUG USE FOR UNKNOWN INDICATION
     Route: 048
  9. PRAVASTATIN [Concomitant]
     Indication: DRUG USE FOR UNKNOWN INDICATION
     Route: 048
  10. LIOTHYRONINE SODIUM [Concomitant]
     Indication: HYPOTHYROIDISM
     Route: 048
  11. INDOMETHACIN [Concomitant]
     Indication: DRUG USE FOR UNKNOWN INDICATION
     Route: 048
  12. ALPRAZOLAM [Concomitant]
     Indication: DRUG USE FOR UNKNOWN INDICATION
     Route: 048
  13. ESTRADIOL [Concomitant]
     Indication: DRUG USE FOR UNKNOWN INDICATION
     Route: 048
  14. PHENYTOIN [Concomitant]
     Indication: EPILEPSY
     Route: 048
  15. METHOTREXATE [Concomitant]
     Indication: RHEUMATOID ARTHRITIS
     Route: 048
  16. PAROXETINE HCL [Concomitant]
     Indication: DRUG USE FOR UNKNOWN INDICATION
     Route: 048
  17. INSULIN GLARGINE [Concomitant]
     Indication: DIABETES MELLITUS
     Route: 058
  18. NOVOLIN [Concomitant]
     Indication: DIABETES MELLITUS
     Route: 058

REACTIONS (2)
  - INJECTION SITE BRUISING [None]
  - INJECTION SITE PAIN [None]
